FAERS Safety Report 8418985-5 (Version None)
Quarter: 2012Q2

REPORT INFORMATION
  Report Type: 
  Country: None (occurrence: None)
  Receive Date: 20120607
  Receipt Date: 20120601
  Transmission Date: 20120825
  Serious: Yes (Other)
  Sender: FDA-Public Use
  Company Number: PHEH2012US011190

PATIENT
  Sex: Female

DRUGS (1)
  1. DIOVAN HCT [Suspect]
     Dosage: UNK UKN, UNK

REACTIONS (2)
  - CARDIAC DISORDER [None]
  - BLOOD CALCIUM DECREASED [None]
